FAERS Safety Report 25655512 (Version 1)
Quarter: 2025Q3

REPORT INFORMATION
  Report Type: Spontaneous
  Country: US (occurrence: US)
  Receive Date: 20250807
  Receipt Date: 20250807
  Transmission Date: 20251021
  Serious: No
  Sender: MERCK SHARP & DOHME LLC
  Company Number: US-009507513-2310822

PATIENT
  Age: 71 Year
  Sex: Male
  Weight: 85.28 kg

DRUGS (3)
  1. WELIREG [Suspect]
     Active Substance: BELZUTIFAN
     Indication: Renal cancer
     Dosage: 3 TABLETS OF 40 MG
     Route: 065
  2. CALQUENCE [Suspect]
     Active Substance: ACALABRUTINIB
     Indication: Renal cancer
     Route: 065
     Dates: start: 2019
  3. CABOMETYX [Suspect]
     Active Substance: CABOZANTINIB S-MALATE
     Indication: Renal cancer
     Route: 048

REACTIONS (3)
  - Haemorrhage [Unknown]
  - Oral surgery [Unknown]
  - Anaemia [Unknown]
